FAERS Safety Report 24282769 (Version 1)
Quarter: 2024Q3

REPORT INFORMATION
  Report Type: Spontaneous
  Country: US (occurrence: US)
  Receive Date: 20240904
  Receipt Date: 20240904
  Transmission Date: 20241016
  Serious: No
  Sender: PFIZER
  Company Number: US-PFIZER INC-PV202400114349

PATIENT
  Age: 49 Year
  Sex: Female
  Weight: 104.3 kg

DRUGS (12)
  1. NURTEC ODT [Suspect]
     Active Substance: RIMEGEPANT SULFATE
     Indication: Migraine
     Dosage: UNK
  2. ALDACTONE [Concomitant]
     Active Substance: SPIRONOLACTONE
     Dosage: 100 MG TABLET BID
  3. ATIVAN [Concomitant]
     Active Substance: LORAZEPAM
     Dosage: 0.5 MG PRN
  4. FOLIC ACID [Concomitant]
     Active Substance: FOLIC ACID
     Dosage: 1000 UG TABLET, DAILY
  5. ORENCIA [Concomitant]
     Active Substance: ABATACEPT
     Dosage: 125 MG SQ INJECTION, WEEKLY
     Route: 058
  6. PLAQUENIL [Concomitant]
     Active Substance: HYDROXYCHLOROQUINE SULFATE
     Dosage: 200 MG TABLET BID
  7. QULIPTA [Concomitant]
     Active Substance: ATOGEPANT
     Dosage: 60 MG TABLET QHS (EVERY NIGHT AT BEDTIME)
  8. TRAMADOL HCL ER [Concomitant]
     Dosage: 100 MG TABLET QHS (EVERY NIGHT AT BEDTIME)
  9. VERAPAMIL [Concomitant]
     Active Substance: VERAPAMIL HYDROCHLORIDE
     Dosage: 120 MG TABLET TID
  10. VITAMIN B2 [Concomitant]
     Active Substance: RIBOFLAVIN
     Dosage: 200 MG TABLET BID
  11. ZEBETA [Concomitant]
     Active Substance: BISOPROLOL FUMARATE
     Dosage: 2.5 MG, DAILY
  12. ZYRTEC [Concomitant]
     Active Substance: CETIRIZINE HYDROCHLORIDE
     Dosage: 10 MG TABLET DAILY

REACTIONS (1)
  - Fatigue [Recovered/Resolved]

NARRATIVE: CASE EVENT DATE: 20240826
